FAERS Safety Report 17296197 (Version 2)
Quarter: 2022Q1

REPORT INFORMATION
  Report Type: Report from Study
  Country: US (occurrence: US)
  Receive Date: 20200121
  Receipt Date: 20220113
  Transmission Date: 20220423
  Serious: Yes (Hospitalization)
  Sender: FDA-Public Use
  Company Number: US-BAXTER-2020BAX000907

PATIENT
  Age: 2 Year
  Sex: Male
  Weight: 11.2 kg

DRUGS (13)
  1. CYCLOPHOSPHAMIDE [Suspect]
     Active Substance: CYCLOPHOSPHAMIDE
     Indication: Product used for unknown indication
     Dosage: PER DOSING TABLE IV OVER 60 MINUTES ON DAY 1 OF CYCLES 1 AND 3
     Route: 042
     Dates: start: 20190923
  2. CYCLOPHOSPHAMIDE [Suspect]
     Active Substance: CYCLOPHOSPHAMIDE
     Dosage: PER DOSING TABLE IV OVER 60 MINUTES ON DAY 1 OF CYCLES 5
     Route: 042
  3. CYCLOPHOSPHAMIDE [Suspect]
     Active Substance: CYCLOPHOSPHAMIDE
     Dosage: LAST DOSE PRIOR TO THE SAE (SERIOUS ADVERSE EVENT)
     Route: 042
     Dates: start: 20191216, end: 20191216
  4. VINCRISTINE SULFATE [Suspect]
     Active Substance: VINCRISTINE SULFATE
     Indication: Product used for unknown indication
     Dosage: PER DOSING TABLE IV OVER 1 MINUTE OR INFUSION VIA MINIBAG ON DAYS 1, 8, AND 15 OF CYCLES 1-4
     Route: 042
     Dates: start: 20190923
  5. VINCRISTINE SULFATE [Suspect]
     Active Substance: VINCRISTINE SULFATE
     Dosage: PER DOSING TABLE IV OVER 1 MINUTE OR INFUSION VIA MINIBAG ON DAY 1 OF CYCLES 5
     Route: 042
  6. VINCRISTINE SULFATE [Suspect]
     Active Substance: VINCRISTINE SULFATE
     Dosage: LAST DOSE PRIOR TO SAE
     Route: 042
     Dates: start: 20191216, end: 20191216
  7. CAMPTOSAR [Suspect]
     Active Substance: IRINOTECAN HYDROCHLORIDE
     Indication: Product used for unknown indication
     Dosage: CPT-11, PER DOSING TABLE IV OVER 90 MINUTES ON DAYS 1-5 OF CYCLES 2 AND 4
     Route: 042
     Dates: start: 20190923
  8. CAMPTOSAR [Suspect]
     Active Substance: IRINOTECAN HYDROCHLORIDE
     Dosage: CPT-11, PER DOSING TABLE IV OVER 90 MINUTES ON DAYS 1-5 OF CYCLES 6, 7 AND 9
     Route: 042
  9. TEMSIROLIMUS [Suspect]
     Active Substance: TEMSIROLIMUS
     Indication: Product used for unknown indication
     Dosage: CCI-779, IV OVER 30-60 MINUTES ON DAYS 1, 8, AND 15
     Route: 042
     Dates: start: 20190923
  10. TEMSIROLIMUS [Suspect]
     Active Substance: TEMSIROLIMUS
     Dosage: LAST DOSE PRIOR TO SAE
     Route: 042
     Dates: start: 20191209, end: 20191209
  11. DACTINOMYCIN [Suspect]
     Active Substance: DACTINOMYCIN
     Indication: Product used for unknown indication
     Dosage: PER DOSING TABLE IV OVER 1-5 MINUTES ON DAY 1 OF CYCLES 1 AND 3
     Route: 042
     Dates: start: 20190923
  12. DACTINOMYCIN [Suspect]
     Active Substance: DACTINOMYCIN
     Dosage: PER DOSING TABLE IV OVER 1-5 MINUTES ON DAY 1 OF CYCLES 5
     Route: 042
  13. DACTINOMYCIN [Suspect]
     Active Substance: DACTINOMYCIN
     Dosage: LAST DOSE PRIOR TO SAE
     Route: 042
     Dates: start: 20191216, end: 20191216

REACTIONS (1)
  - Urinary tract obstruction [Not Recovered/Not Resolved]

NARRATIVE: CASE EVENT DATE: 20191219
